FAERS Safety Report 7293800-4 (Version None)
Quarter: 2011Q1

REPORT INFORMATION
  Report Type: 
  Country: None (occurrence: None)
  Receive Date: 20110215
  Receipt Date: 20110201
  Transmission Date: 20110831
  Serious: Yes (Hospitalization)
  Sender: FDA-Public Use
  Company Number: DE-BAYER-201033156GPV

PATIENT
  Age: 63 Year
  Sex: Female
  Weight: 76 kg

DRUGS (6)
  1. DELIX [Concomitant]
     Indication: DECREASED VENTRICULAR AFTERLOAD
     Dosage: 2.5 MG (DAILY DOSE), ,
     Dates: start: 20100429, end: 20100622
  2. BLINDED SORAFENIB (RAF KINASE INHIBITOR) [Suspect]
     Indication: PANCREATIC CARCINOMA
     Dosage: 800 MG (DAILY DOSE), QD, ORAL
     Route: 048
     Dates: end: 20100629
  3. BISOPROLOL [Concomitant]
     Indication: CARDIOVASCULAR EVENT PROPHYLAXIS
     Dosage: 5 MG (DAILY DOSE), ,
     Dates: start: 20091009, end: 20100622
  4. GEMCITABINE [Suspect]
     Indication: PANCREATIC CARCINOMA
     Dosage: 1770 MG (DAILY DOSE), QD,
     Dates: end: 20100610
  5. ARIXTRA [Concomitant]
     Indication: THROMBOSIS PROPHYLAXIS
     Dosage: 7.5 MG (DAILY DOSE), ,
     Dates: start: 20100511
  6. TOREM [Concomitant]
     Indication: CARDIOVASCULAR EVENT PROPHYLAXIS
     Dosage: 10 MG (DAILY DOSE), ,
     Dates: start: 20100429

REACTIONS (3)
  - CARDIAC FAILURE [None]
  - DYSPNOEA [None]
  - PLEURAL EFFUSION [None]
